FAERS Safety Report 7806230-0 (Version None)
Quarter: 2011Q4

REPORT INFORMATION
  Report Type: 
  Country: None (occurrence: None)
  Receive Date: 20111011
  Receipt Date: 20110930
  Transmission Date: 20120403
  Serious: Yes (Life-Threatening)
  Sender: FDA-Public Use
  Company Number: JP-AMGEN-JPNCT2011051839

PATIENT
  Age: 76 Year
  Sex: Male
  Weight: 56 kg

DRUGS (7)
  1. POLARAMINE [Concomitant]
     Dosage: UNK
     Route: 042
  2. FAMOTIDINE [Concomitant]
     Dosage: UNK
     Route: 048
  3. PANITUMUMAB [Suspect]
     Indication: COLORECTAL CANCER METASTATIC
     Dosage: 6 MG/KG, Q2WK
     Route: 041
     Dates: start: 20101110, end: 20110630
  4. ANTIHISTAMINES [Concomitant]
     Indication: PROPHYLAXIS
     Dosage: UNK
  5. TAMSULOSIN HCL [Concomitant]
     Dosage: UNK
     Route: 048
  6. DECADRON [Concomitant]
     Dosage: UNK
     Route: 042
  7. CORTICOSTEROIDS [Concomitant]
     Indication: PROPHYLAXIS
     Dosage: UNK

REACTIONS (4)
  - DERMATITIS ACNEIFORM [None]
  - HYPOMAGNESAEMIA [None]
  - INTERSTITIAL LUNG DISEASE [None]
  - DRY SKIN [None]
